FAERS Safety Report 8605888-6 (Version None)
Quarter: 2012Q3

REPORT INFORMATION
  Report Type: 
  Country: None (occurrence: None)
  Receive Date: 20120820
  Receipt Date: 20120815
  Transmission Date: 20120928
  Serious: Yes (Other)
  Sender: FDA-Public Use
  Company Number: LV-GLAXOSMITHKLINE-B0809724A

PATIENT
  Sex: Male
  Weight: 90 kg

DRUGS (5)
  1. POTIGA [Suspect]
     Indication: PARTIAL SEIZURES
     Dosage: 150MG PER DAY
     Route: 048
     Dates: start: 20120522, end: 20120524
  2. PHENAEMAL [Concomitant]
     Indication: EPILEPSY
     Dosage: 150MG PER DAY
     Route: 048
  3. VALPROIC ACID [Concomitant]
     Indication: EPILEPSY
     Dosage: 1000MG PER DAY
     Route: 048
  4. CARBAMAZEPINE [Concomitant]
     Indication: EPILEPSY
     Dosage: 800MG PER DAY
     Route: 048
  5. DIAZEPAM [Concomitant]
     Indication: EPILEPSY
     Route: 030

REACTIONS (1)
  - EPILEPSY [None]
